FAERS Safety Report 4519659-3 (Version None)
Quarter: 2004Q4

REPORT INFORMATION
  Report Type: 
  Country: None (occurrence: None)
  Receive Date: 20041206
  Receipt Date: 20041111
  Transmission Date: 20050328
  Serious: Yes (Disabling)
  Sender: FDA-Public Use
  Company Number: PHEH2004US12252

PATIENT
  Age: 22 Year
  Sex: Male

DRUGS (3)
  1. BENICAR [Concomitant]
     Indication: HYPERTENSION
  2. LOTREL [Concomitant]
     Indication: HYPERTENSION
  3. LAMISIL [Suspect]
     Indication: TINEA CAPITIS
     Dosage: 250 MG, QD
     Route: 048
     Dates: start: 20040621, end: 20040627

REACTIONS (3)
  - RETINAL ARTERY EMBOLISM [None]
  - RETINAL VASCULAR THROMBOSIS [None]
  - VISUAL DISTURBANCE [None]
